FAERS Safety Report 26148606 (Version 1)
Quarter: 2025Q4

REPORT INFORMATION
  Report Type: Spontaneous
  Country: EU (occurrence: EU)
  Receive Date: 20251212
  Receipt Date: 20251212
  Transmission Date: 20260117
  Serious: Yes (Other)
  Sender: AUROBINDO
  Company Number: EU-AEMPS-1784036

PATIENT
  Age: 75 Year
  Sex: Female

DRUGS (3)
  1. LORAZEPAM [Suspect]
     Active Substance: LORAZEPAM
     Indication: Insomnia
     Dosage: 1 MILLIGRAM, ONCE A DAY
     Dates: start: 20250101
  2. PROPIVERINE HYDROCHLORIDE [Suspect]
     Active Substance: PROPIVERINE HYDROCHLORIDE
     Indication: Hypertonic bladder
     Dosage: UNK
  3. SULFAMETHOXAZOLE\TRIMETHOPRIM [Suspect]
     Active Substance: SULFAMETHOXAZOLE\TRIMETHOPRIM
     Indication: Urinary tract infection bacterial
     Dosage: 1 DOSAGE FORM
     Dates: start: 20251107, end: 20251108

REACTIONS (4)
  - Muscle rigidity [Recovering/Resolving]
  - Tachycardia [Recovering/Resolving]
  - Nausea [Recovering/Resolving]
  - Depressed level of consciousness [Recovered/Resolved]

NARRATIVE: CASE EVENT DATE: 20251109
